FAERS Safety Report 19590990 (Version 4)
Quarter: 2025Q1

REPORT INFORMATION
  Report Type: Spontaneous
  Country: IT (occurrence: IT)
  Receive Date: 20210721
  Receipt Date: 20250328
  Transmission Date: 20250409
  Serious: Yes (Life-Threatening, Hospitalization, Other)
  Sender: SANOFI AVENTIS
  Company Number: IT-MLMSERVICE-20210526-2910661-1

PATIENT
  Age: 33 Year
  Sex: Female

DRUGS (27)
  1. METOCLOPRAMIDE HYDROCHLORIDE [Suspect]
     Active Substance: METOCLOPRAMIDE HYDROCHLORIDE
     Indication: Nausea
     Dosage: 10 MG, QD
     Route: 048
  2. METOCLOPRAMIDE HYDROCHLORIDE [Suspect]
     Active Substance: METOCLOPRAMIDE HYDROCHLORIDE
     Indication: Dyspepsia
     Dosage: 10 MG, BID
     Route: 048
  3. BISOPROLOL [Suspect]
     Active Substance: BISOPROLOL
     Indication: Hypertension
     Dosage: 2.5 MG, QD
  4. HYDROCHLOROTHIAZIDE [Suspect]
     Active Substance: HYDROCHLOROTHIAZIDE
     Indication: Hypertension
     Dosage: 6.25 MG, QD
  5. NIFEDIPINE [Suspect]
     Active Substance: NIFEDIPINE
     Indication: Hypertension
     Dosage: 20 MG, QD
  6. NIFEDIPINE [Suspect]
     Active Substance: NIFEDIPINE
     Indication: Phaeochromocytoma crisis
     Dosage: 30 MG, QD
  7. INSULIN LISPRO [Suspect]
     Active Substance: INSULIN LISPRO
     Indication: Gestational diabetes
     Route: 058
  8. INSULIN LISPRO [Suspect]
     Active Substance: INSULIN LISPRO
     Route: 058
  9. INSULIN LISPRO [Suspect]
     Active Substance: INSULIN LISPRO
     Route: 058
  10. INSULIN GLARGINE [Suspect]
     Active Substance: INSULIN GLARGINE
     Indication: Gestational diabetes
     Dosage: 15 IU, HS AT 09.00 P.M
     Route: 058
  11. MAGNESIUM SULFATE [Suspect]
     Active Substance: MAGNESIUM SULFATE
     Indication: Blood pressure management
  12. MAGNESIUM SULFATE [Suspect]
     Active Substance: MAGNESIUM SULFATE
     Indication: Hypertensive crisis
  13. MAGNESIUM SULFATE [Suspect]
     Active Substance: MAGNESIUM SULFATE
     Indication: Prophylaxis
  14. SODIUM CHLORIDE [Suspect]
     Active Substance: SODIUM CHLORIDE
  15. SODIUM CHLORIDE [Suspect]
     Active Substance: SODIUM CHLORIDE
  16. SODIUM CHLORIDE [Suspect]
     Active Substance: SODIUM CHLORIDE
  17. LABETALOL [Suspect]
     Active Substance: LABETALOL
     Indication: Hypertensive crisis
     Route: 040
  18. LABETALOL [Suspect]
     Active Substance: LABETALOL
     Dosage: 2 MG, QMN, CONTINUOUS INFUSION
     Route: 041
  19. METHYLDOPA [Suspect]
     Active Substance: METHYLDOPA
     Indication: Hypertension
     Dosage: 500 MG, TID
  20. URAPIDIL [Suspect]
     Active Substance: URAPIDIL
     Indication: Hypertensive crisis
     Route: 040
  21. URAPIDIL [Suspect]
     Active Substance: URAPIDIL
     Dosage: 0.5 MG, QMN
     Route: 041
  22. POTASSIUM CHLORIDE [Suspect]
     Active Substance: POTASSIUM CHLORIDE
     Indication: Supplementation therapy
  23. DOXAZOSIN MESYLATE [Suspect]
     Active Substance: DOXAZOSIN MESYLATE
     Indication: Phaeochromocytoma crisis
     Dosage: 14 MG, QD (UPTO)
     Route: 048
  24. DOXAZOSIN MESYLATE [Suspect]
     Active Substance: DOXAZOSIN MESYLATE
     Dosage: 8 MG, QD
     Route: 048
  25. ATENOLOL [Suspect]
     Active Substance: ATENOLOL
     Indication: Phaeochromocytoma crisis
     Dosage: 12.5 MG, QD
     Route: 048
  26. ATENOLOL [Suspect]
     Active Substance: ATENOLOL
     Route: 048
  27. ATENOLOL [Suspect]
     Active Substance: ATENOLOL
     Dosage: 25 MG, QD
     Route: 048

REACTIONS (11)
  - Phaeochromocytoma crisis [Recovered/Resolved]
  - Condition aggravated [Recovered/Resolved]
  - Hypertensive crisis [Recovered/Resolved]
  - Hypokalaemia [Recovered/Resolved]
  - Proteinuria [Recovered/Resolved]
  - Headache [Recovered/Resolved]
  - Irritability [Recovered/Resolved]
  - Tachycardia [Recovered/Resolved]
  - Asthenia [Recovered/Resolved]
  - Anxiety [Recovered/Resolved]
  - Exposure during pregnancy [Unknown]
